FAERS Safety Report 8697731 (Version 2)
Quarter: 2013Q4

REPORT INFORMATION
  Report Type: Spontaneous
  Country: US (occurrence: US)
  Receive Date: 20120801
  Receipt Date: 20131106
  Transmission Date: 20140711
  Serious: Yes (Other)
  Sender: FDA-Public Use
  Company Number: US-009507513-1207USA010538

PATIENT
  Age: 63 Year
  Sex: Male

DRUGS (2)
  1. ZOCOR [Suspect]
     Dosage: 20 MG, QPM
  2. LISINOPRIL [Suspect]
     Dosage: 5 MG, BID

REACTIONS (7)
  - Memory impairment [Unknown]
  - Somnolence [Unknown]
  - Pain [Unknown]
  - Fatigue [Unknown]
  - Asthenia [Unknown]
  - Haematochezia [Unknown]
  - Diarrhoea [Unknown]
